FAERS Safety Report 8469918-7 (Version None)
Quarter: 2012Q2

REPORT INFORMATION
  Report Type: 
  Country: None (occurrence: None)
  Receive Date: 20120627
  Receipt Date: 20120619
  Transmission Date: 20120825
  Serious: Yes (Other)
  Sender: FDA-Public Use
  Company Number: US-BIOGENIDEC-2012BI011693

PATIENT
  Age: 27 Year
  Sex: Female

DRUGS (1)
  1. TYSABRI [Suspect]
     Indication: MULTIPLE SCLEROSIS
     Route: 042
     Dates: start: 20090206

REACTIONS (7)
  - URINARY TRACT INFECTION [None]
  - CONVULSION [None]
  - DIZZINESS [None]
  - CONSTIPATION [None]
  - PROCEDURAL PAIN [None]
  - STRESS [None]
  - FEELING COLD [None]
